FAERS Safety Report 7852436 (Version 4)
Quarter: 2013Q4

REPORT INFORMATION
  Report Type: Spontaneous
  Country: US (occurrence: US)
  Receive Date: 20110311
  Receipt Date: 20131101
  Transmission Date: 20140711
  Serious: Yes (Life-Threatening, Hospitalization)
  Sender: FDA-Public Use
  Company Number: US-B.I. PHARMACEUTICALS,INC./RIDGEFIELD-2011-BP-07304BP

PATIENT
  Age: 76 Year
  Sex: Female
  Weight: 99.79 kg

DRUGS (19)
  1. PRADAXA [Suspect]
     Indication: ATRIAL FIBRILLATION
     Dosage: 300 MG
     Route: 048
     Dates: start: 20110218
  2. PRADAXA [Suspect]
     Indication: ANTICOAGULANT THERAPY
     Dosage: 150 MG
     Dates: start: 20110314, end: 20110414
  3. PLAVIX [Suspect]
     Dosage: 75 MG
  4. ASPIRIN [Suspect]
     Dosage: 81 MG
  5. TYLENOL [Concomitant]
  6. ALLOPURINOL [Concomitant]
     Dosage: 300 MG
  7. MAALOX PLUS [Concomitant]
  8. MYLANTA [Concomitant]
  9. COREG [Concomitant]
     Dosage: 12.5 MG
  10. MULTAQ [Concomitant]
     Dosage: 800 MG
  11. TRICOR [Concomitant]
     Dosage: 48 MG
  12. LASIX [Concomitant]
     Dosage: 160 MG
  13. AMARYL [Concomitant]
     Dosage: 4 MG
  14. MULTIVITAMIN [Concomitant]
  15. NIACIN [Concomitant]
     Dosage: 1000 MG
  16. BENICAR [Concomitant]
  17. OMEGA-3 FATTY ACIDS [Concomitant]
     Dosage: 2 G
  18. POTASSIUM CHLORIDE [Concomitant]
     Dosage: 40 MEQ
  19. ZOCOR [Concomitant]
     Dosage: 20 MG

REACTIONS (9)
  - Haemorrhage [Not Recovered/Not Resolved]
  - Rectal haemorrhage [Unknown]
  - Epistaxis [Recovered/Resolved]
  - Melaena [Unknown]
  - Anaemia [Unknown]
  - Renal failure acute [Unknown]
  - Gastrointestinal haemorrhage [Unknown]
  - International normalised ratio [Not Recovered/Not Resolved]
  - Melaena [Not Recovered/Not Resolved]
